FAERS Safety Report 23863196 (Version 1)
Quarter: 2024Q2

REPORT INFORMATION
  Report Type: Spontaneous
  Country: US (occurrence: US)
  Receive Date: 20240516
  Receipt Date: 20240516
  Transmission Date: 20240716
  Serious: No
  Sender: FDA-Public Use
  Company Number: US-SANDOZ-SDZ2024US048852

PATIENT
  Sex: Female

DRUGS (1)
  1. COMBIPATCH [Suspect]
     Active Substance: ESTRADIOL\NORETHINDRONE ACETATE
     Indication: Product used for unknown indication
     Dosage: UNK
     Route: 065

REACTIONS (11)
  - Hot flush [Not Recovered/Not Resolved]
  - Dermal absorption impaired [Unknown]
  - Night sweats [Not Recovered/Not Resolved]
  - Application site irritation [Unknown]
  - Product adhesion issue [Unknown]
  - Product residue present [Unknown]
  - Application site haemorrhage [Unknown]
  - Product dose omission issue [Recovered/Resolved]
  - Product administration error [Unknown]
  - Adhesive tape use [Recovered/Resolved]
  - Wrong technique in product usage process [Recovered/Resolved]
